FAERS Safety Report 4732878-6 (Version None)
Quarter: 2005Q3

REPORT INFORMATION
  Report Type: 
  Country: None (occurrence: None)
  Receive Date: 20050801
  Receipt Date: 20050719
  Transmission Date: 20060218
  Serious: Yes (Other)
  Sender: FDA-Public Use
  Company Number: 2005059048

PATIENT
  Age: 34 Year
  Sex: Female

DRUGS (2)
  1. BEXTRA [Suspect]
     Indication: BURSITIS
     Dosage: (20 MG), ORAL
     Route: 048
     Dates: start: 20050201, end: 20050201
  2. BEXTRA [Suspect]
     Indication: TENDONITIS
     Dosage: (20 MG), ORAL
     Route: 048
     Dates: start: 20050201, end: 20050201

REACTIONS (8)
  - ACNE [None]
  - COMEDONE [None]
  - DRUG INEFFECTIVE [None]
  - DRY SKIN [None]
  - DYSPNOEA [None]
  - MALAISE [None]
  - NAUSEA [None]
  - PALPITATIONS [None]
